FAERS Safety Report 13511742 (Version 1)
Quarter: 2017Q2

REPORT INFORMATION
  Report Type: Spontaneous
  Country: US (occurrence: US)
  Receive Date: 20170503
  Receipt Date: 20170503
  Transmission Date: 20170830
  Serious: Yes (Disabling)
  Sender: FDA-Public Use
  Company Number: None

PATIENT
  Age: 35 Year
  Sex: Female
  Weight: 92.25 kg

DRUGS (11)
  1. LEVAQUIN [Suspect]
     Active Substance: LEVOFLOXACIN
     Indication: SURGERY
  2. ZYRTEC [Concomitant]
     Active Substance: CETIRIZINE HYDROCHLORIDE
  3. CALCIUM [Concomitant]
     Active Substance: CALCIUM
  4. SYNTHROID [Concomitant]
     Active Substance: LEVOTHYROXINE SODIUM
  5. ACIDOPHILUS [Concomitant]
     Active Substance: LACTOBACILLUS ACIDOPHILUS
  6. VITAMIN D3 [Concomitant]
     Active Substance: CHOLECALCIFEROL
  7. VITAMIN B12 [Concomitant]
     Active Substance: CYANOCOBALAMIN
  8. SINGULAIR [Concomitant]
     Active Substance: MONTELUKAST SODIUM
  9. LEVAQUIN [Suspect]
     Active Substance: LEVOFLOXACIN
     Indication: SINUSITIS
  10. MULTI VITAMIN [Concomitant]
     Active Substance: VITAMINS
  11. CIPRO [Suspect]
     Active Substance: CIPROFLOXACIN HYDROCHLORIDE
     Indication: URINARY TRACT INFECTION

REACTIONS (5)
  - Tendonitis [None]
  - Loss of personal independence in daily activities [None]
  - Pain [None]
  - Tendon rupture [None]
  - Tendinous contracture [None]
